FAERS Safety Report 4810842-6 (Version None)
Quarter: 2005Q4

REPORT INFORMATION
  Report Type: 
  Country: None (occurrence: None)
  Receive Date: 20051024
  Receipt Date: 20051010
  Transmission Date: 20060501
  Serious: Yes (Hospitalization)
  Sender: FDA-Public Use
  Company Number: 2004032018

PATIENT
  Age: 47 Year
  Sex: Male
  Weight: 85.7298 kg

DRUGS (4)
  1. LIPITOR [Suspect]
     Indication: CARDIOVASCULAR DISORDER
     Dosage: (20 MG)
     Dates: start: 19980901, end: 20020701
  2. ACETYLSALICYLIC ACID SRT [Concomitant]
  3. TRICOR [Concomitant]
  4. CENTRUM (MINERALS NOS, VITAMINS NOS) [Concomitant]

REACTIONS (40)
  - ABDOMINAL PAIN UPPER [None]
  - ACTIVATED PARTIAL THROMBOPLASTIN TIME ABNORMAL [None]
  - ACTIVATED PARTIAL THROMBOPLASTIN TIME PROLONGED [None]
  - ALPHA 1 FOETOPROTEIN INCREASED [None]
  - AUTOIMMUNE DISORDER [None]
  - AUTOIMMUNE HEPATITIS [None]
  - BACTERIA URINE [None]
  - BLOOD CHOLESTEROL INCREASED [None]
  - BLOOD GLUCOSE INCREASED [None]
  - CARBON DIOXIDE ABNORMAL [None]
  - CHROMATURIA [None]
  - CHRONIC HEPATITIS [None]
  - DRUG TOXICITY [None]
  - EMOTIONAL DISORDER [None]
  - GALLBLADDER DISORDER [None]
  - GASTROOESOPHAGEAL REFLUX DISEASE [None]
  - HAEMATOCRIT DECREASED [None]
  - HAEMOGLOBIN DECREASED [None]
  - HEPATIC CIRRHOSIS [None]
  - HEPATIC FAILURE [None]
  - HEPATIC FIBROSIS [None]
  - INFARCTION [None]
  - INFECTION [None]
  - INJURY [None]
  - INTERNATIONAL NORMALISED RATIO ABNORMAL [None]
  - INTERNATIONAL NORMALISED RATIO INCREASED [None]
  - MENTAL DISABILITY [None]
  - PAIN [None]
  - PROTEIN TOTAL ABNORMAL [None]
  - PROTEIN TOTAL INCREASED [None]
  - PROTHROMBIN LEVEL ABNORMAL [None]
  - PROTHROMBIN TIME PROLONGED [None]
  - RED BLOOD CELL COUNT DECREASED [None]
  - RENAL CYST [None]
  - RENAL DISORDER [None]
  - SERUM FERRITIN ABNORMAL [None]
  - SERUM FERRITIN INCREASED [None]
  - URINE ANALYSIS ABNORMAL [None]
  - WEIGHT DECREASED [None]
  - WHITE BLOOD CELL COUNT INCREASED [None]
